FAERS Safety Report 4514825-5 (Version None)
Quarter: 2004Q4

REPORT INFORMATION
  Report Type: 
  Country: None (occurrence: None)
  Receive Date: 20041126
  Receipt Date: 20041111
  Transmission Date: 20050328
  Serious: Yes (Disabling)
  Sender: FDA-Public Use
  Company Number: 2004AP05587

PATIENT
  Age: 68 Year
  Sex: Female

DRUGS (3)
  1. DIPRIVAN [Suspect]
     Indication: SEDATION
     Dosage: 3 ML / HR IV
     Route: 042
     Dates: start: 20041026, end: 20041027
  2. FAMOTIDINE [Concomitant]
  3. GLUCOSE [Concomitant]

REACTIONS (1)
  - DELAYED RECOVERY FROM ANAESTHESIA [None]
